FAERS Safety Report 6699032-2 (Version None)
Quarter: 2010Q2

REPORT INFORMATION
  Report Type: 
  Country: None (occurrence: None)
  Receive Date: 20100427
  Receipt Date: 20100421
  Transmission Date: 20101027
  Serious: Yes (Hospitalization)
  Sender: FDA-Public Use
  Company Number: US-BRISTOL-MYERS SQUIBB COMPANY-15074578

PATIENT
  Age: 65 Year
  Sex: Male
  Weight: 72 kg

DRUGS (3)
  1. CISPLATIN [Suspect]
     Indication: STOMATITIS
     Dates: start: 20081229
  2. RADIATION THERAPY [Suspect]
     Dosage: 1DF- 6660 CGY
     Dates: start: 20081229
  3. TUMS [Concomitant]
     Dates: start: 20090204

REACTIONS (3)
  - ORTHOSTATIC HYPOTENSION [None]
  - PANCYTOPENIA [None]
  - UPPER LIMB FRACTURE [None]
